FAERS Safety Report 10038391 (Version 1)
Quarter: 2014Q1

REPORT INFORMATION
  Report Type: Spontaneous
  Country: US (occurrence: US)
  Receive Date: 20140326
  Receipt Date: 20140326
  Transmission Date: 20141002
  Serious: Yes (Other)
  Sender: FDA-Public Use
  Company Number: US-ROXANE LABORATORIES, INC.-2014-RO-00455RO

PATIENT
  Age: 9 Year
  Sex: Female

DRUGS (1)
  1. DEXAMETHASONE [Suspect]
     Indication: ASTROCYTOMA, LOW GRADE
     Route: 065

REACTIONS (2)
  - Skin hypertrophy [Unknown]
  - Generalised oedema [Unknown]
